FAERS Safety Report 8410041-5 (Version None)
Quarter: 2012Q2

REPORT INFORMATION
  Report Type: 
  Country: None (occurrence: None)
  Receive Date: 20120605
  Receipt Date: 20120525
  Transmission Date: 20120825
  Serious: Yes (Hospitalization, Other)
  Sender: FDA-Public Use
  Company Number: BR-SANOFI-AVENTIS-2012SA037585

PATIENT
  Age: 63 Year
  Sex: Male
  Weight: 99 kg

DRUGS (8)
  1. HUMALOG [Concomitant]
     Indication: TYPE 2 DIABETES MELLITUS
     Dosage: 4 IU IN THE MORNING, 6 IU AT LUNCH AND 4 IU AT NIGHT
     Route: 058
  2. CITALOPRAM [Concomitant]
     Indication: ANTIDEPRESSANT THERAPY
     Route: 048
  3. ROSUVASTATIN [Concomitant]
     Dosage: AT 10 PM
     Route: 048
  4. CARVEDILOL [Concomitant]
     Route: 048
  5. LANTUS [Suspect]
     Indication: TYPE 2 DIABETES MELLITUS
     Route: 058
     Dates: start: 20110101
  6. SOLOSTAR [Suspect]
     Indication: DEVICE THERAPY
     Dates: start: 20110101
  7. PANTOPRAZOLE [Concomitant]
     Indication: GASTRIC DISORDER
     Dosage: FREQUENCY: DAILY IN FASTING
     Route: 048
  8. CLONAZEPAM [Concomitant]
     Route: 048

REACTIONS (10)
  - FATIGUE [None]
  - CARDIAC VALVE DISEASE [None]
  - GENERAL PHYSICAL HEALTH DETERIORATION [None]
  - VARICES OESOPHAGEAL [None]
  - ANAEMIA [None]
  - INFLUENZA [None]
  - LUNG INFECTION [None]
  - RESPIRATORY FAILURE [None]
  - HAEMORRHAGE [None]
  - DYSPNOEA [None]
